FAERS Safety Report 4716984-8 (Version None)
Quarter: 2005Q3

REPORT INFORMATION
  Report Type: 
  Country: None (occurrence: None)
  Receive Date: 20050719
  Receipt Date: 20050406
  Transmission Date: 20060218
  Serious: Yes (Life-Threatening, Hospitalization, Disabling)
  Sender: FDA-Public Use
  Company Number: JP-ROCHE-400874

PATIENT
  Age: 64 Year
  Sex: Male

DRUGS (8)
  1. PANALDINE [Suspect]
     Indication: THROMBOSIS PROPHYLAXIS
     Dosage: FULL INDICATION:  PREVENTION OF SUBACUTE THROMBOSIS FOLLOWING CORONARY STENTING DUE TO ACUTE MYOCAR+
     Route: 048
     Dates: start: 20050226, end: 20050324
  2. CONIEL [Concomitant]
     Route: 048
     Dates: start: 20000906, end: 20050227
  3. SELOKEN [Concomitant]
     Route: 048
     Dates: start: 20010906
  4. ASPIRIN [Concomitant]
     Route: 048
     Dates: start: 20010906, end: 20050325
  5. GASTER D [Concomitant]
     Route: 048
     Dates: start: 20050226, end: 20050324
  6. HANP [Concomitant]
     Dosage: TDD: 5V.
     Route: 041
     Dates: start: 20050226, end: 20050303
  7. BLOPRESS [Concomitant]
     Route: 048
     Dates: start: 20050227, end: 20050325
  8. TAKEPRON [Concomitant]
     Route: 048
     Dates: start: 20050324, end: 20050325

REACTIONS (6)
  - AGITATION [None]
  - ANAEMIA [None]
  - PYREXIA [None]
  - RED BLOOD CELL ABNORMALITY [None]
  - RENAL FAILURE [None]
  - THROMBOCYTOPENIA [None]
